FAERS Safety Report 10870549 (Version 1)
Quarter: 2015Q1

REPORT INFORMATION
  Report Type: Spontaneous
  Country: CN (occurrence: None)
  Receive Date: 20150223
  Receipt Date: 20150223
  Transmission Date: 20150721
  Serious: Yes (Other)
  Sender: FDA-Public Use
  Company Number: 2748171

PATIENT
  Age: 43 Year
  Sex: Male

DRUGS (7)
  1. CALCIUM FOLINATE [Suspect]
     Active Substance: LEUCOVORIN CALCIUM
     Indication: HEPATIC CANCER METASTATIC
     Dosage: 200 MG/M 2 MILLIGRAM(S)/SQ.METER (1 WEEK)
     Route: 041
     Dates: start: 20120917
  2. OXALIPLATIN. [Suspect]
     Active Substance: OXALIPLATIN
     Indication: HEPATIC CANCER METASTATIC
     Dosage: 85 MG/M 2 MILLIGRAM(S)/SQ.METER (1 WEEK)
     Route: 041
     Dates: start: 20120917
  3. OXALIPLATIN. [Suspect]
     Active Substance: OXALIPLATIN
     Indication: METASTASES TO LUNG
     Dosage: 85 MG/M 2 MILLIGRAM(S)/SQ.METER (1 WEEK)
     Route: 041
     Dates: start: 20120917
  4. FLUOROURACIL. [Suspect]
     Active Substance: FLUOROURACIL
     Indication: METASTASES TO LUNG
     Dosage: 400 MG/M 2 MILLIGRAM(S)/SQ.METER (1 WEEK)
     Route: 040
     Dates: start: 20120917
  5. CALCIUM FOLINATE [Suspect]
     Active Substance: LEUCOVORIN CALCIUM
     Indication: METASTASES TO LUNG
     Dosage: 200 MG/M 2 MILLIGRAM(S)/SQ.METER (1 WEEK)
     Route: 041
     Dates: start: 20120917
  6. FLUOROURACIL. [Suspect]
     Active Substance: FLUOROURACIL
     Indication: HEPATIC CANCER METASTATIC
     Dosage: 400 MG/M 2 MILLIGRAM(S)/SQ.METER (1 WEEK)
     Route: 040
     Dates: start: 20120917
  7. OXALIPLATIN. [Suspect]
     Active Substance: OXALIPLATIN
     Dosage: 85 MG/M 2 MILLIGRAM(S)/SQ.METER (1 WEEK)
     Route: 041
     Dates: start: 20120917

REACTIONS (4)
  - Hepatic failure [None]
  - Hepatitis B [None]
  - Malignant neoplasm progression [None]
  - Hepatic cancer metastatic [None]

NARRATIVE: CASE EVENT DATE: 20121114
